FAERS Safety Report 10553701 (Version 2)
Quarter: 2015Q2

REPORT INFORMATION
  Report Type: Report from Study
  Country: CA (occurrence: CA)
  Receive Date: 20141030
  Receipt Date: 20150504
  Transmission Date: 20150821
  Serious: Yes (Other)
  Sender: FDA-Public Use
  Company Number: PHHY2014CA140434

PATIENT
  Age: 69 Year
  Sex: Female

DRUGS (1)
  1. ZOMETA [Suspect]
     Active Substance: ZOLEDRONIC ACID
     Indication: BREAST CANCER
     Dosage: 4 MG, EVERY 6 MONTHS
     Route: 042
     Dates: start: 20140508

REACTIONS (2)
  - Autoimmune disorder [Unknown]
  - Coeliac disease [Unknown]

NARRATIVE: CASE EVENT DATE: 20141020
